FAERS Safety Report 9443273 (Version 1)
Quarter: 2013Q3

REPORT INFORMATION
  Report Type: Spontaneous
  Country: US (occurrence: US)
  Receive Date: 20130806
  Receipt Date: 20130806
  Transmission Date: 20140515
  Serious: Yes (Death, Other)
  Sender: FDA-Public Use
  Company Number: US-BAXTER-2013BAX030271

PATIENT
  Age: 67 Year
  Sex: Male

DRUGS (7)
  1. GAMMAGARD LIQUID [Suspect]
     Indication: OFF LABEL USE
     Dosage: 4 DOSES
     Route: 042
  2. GAMMAGARD LIQUID [Suspect]
     Indication: RETINAL VASCULITIS
  3. CARBOPLATIN [Suspect]
     Indication: LUNG NEOPLASM MALIGNANT
     Route: 065
  4. PACLITAXEL [Suspect]
     Indication: LUNG NEOPLASM MALIGNANT
     Route: 065
  5. METHYLPREDNISOLONE [Suspect]
     Indication: VISUAL ACUITY REDUCED
     Route: 042
  6. PREDNISONE [Suspect]
     Indication: VISUAL ACUITY REDUCED
     Dosage: TAPERED OVER 2 MONTHS
     Route: 048
  7. MYCOPHENOLATE MOFETIL [Suspect]
     Indication: RETINAL VASCULITIS
     Route: 065

REACTIONS (2)
  - Drug ineffective [Not Recovered/Not Resolved]
  - Death [Fatal]
